FAERS Safety Report 22390551 (Version 1)
Quarter: 2023Q2

REPORT INFORMATION
  Report Type: Spontaneous
  Country: None (occurrence: US)
  Receive Date: 20230531
  Receipt Date: 20230531
  Transmission Date: 20230721
  Serious: No
  Sender: FDA-Public Use
  Company Number: US-Akorn Operating Company, LLC-2142193

PATIENT
  Age: 23 Year
  Sex: Male
  Weight: 91 kg

DRUGS (2)
  1. ORPHENADRINE CITRATE [Suspect]
     Active Substance: ORPHENADRINE CITRATE
     Indication: Muscle spasms
     Route: 030
     Dates: start: 20230509
  2. TORADOL [Concomitant]
     Active Substance: KETOROLAC TROMETHAMINE
     Route: 030

REACTIONS (2)
  - Syncope [Recovered/Resolved]
  - Head injury [Recovered/Resolved]

NARRATIVE: CASE EVENT DATE: 20230509
